FAERS Safety Report 11163927 (Version 2)
Quarter: 2015Q2

REPORT INFORMATION
  Report Type: Spontaneous
  Country: GB (occurrence: GB)
  Receive Date: 20150604
  Receipt Date: 20150611
  Transmission Date: 20150821
  Serious: Yes (Other)
  Sender: FDA-Public Use
  Company Number: GB-PFIZER INC-2015184237

PATIENT
  Age: 79 Year
  Sex: Male

DRUGS (9)
  1. CHAMPIX [Suspect]
     Active Substance: VARENICLINE TARTRATE
     Indication: SMOKING CESSATION THERAPY
     Dosage: 0.5 MG, UNK
     Route: 048
     Dates: start: 20150415, end: 20150420
  2. SALBUTAMOL [Concomitant]
     Active Substance: ALBUTEROL
     Dosage: 200 ?G (2 PUFFS), UNK
     Route: 055
     Dates: start: 2009
  3. ASPIRIN. [Concomitant]
     Active Substance: ASPIRIN
     Dosage: 75 MG, UNK
  4. ATENOLOL. [Concomitant]
     Active Substance: ATENOLOL
     Dosage: 25 MG, 1X/DAY
     Dates: start: 2009
  5. RAMIPRIL. [Concomitant]
     Active Substance: RAMIPRIL
     Dosage: 85 MG, 1X/DAY
     Dates: start: 2006
  6. CO-BENELDOPA [Concomitant]
     Active Substance: BENSERAZIDE HYDROCHLORIDE\LEVODOPA
     Dosage: 1 DF, 3X/DAY (BENSERAZIDE HYDROCHLORIDE 25MG/LEVODOPA 100MG)
     Dates: start: 2013
  7. SIMVASTATIN. [Concomitant]
     Active Substance: SIMVASTATIN
     Dosage: 40 MG, 1X/DAY (NIGHTLY)
     Dates: start: 2005
  8. DOCOSAHEXAENOIC ACID [Concomitant]
     Dosage: 380 MG, 1X/DAY
  9. EICOSAPENTAENOIC ACID [Concomitant]
     Dosage: 460 MG, 1X/DAY

REACTIONS (2)
  - Tremor [Recovered/Resolved]
  - Gait disturbance [Recovered/Resolved]

NARRATIVE: CASE EVENT DATE: 20150415
